FAERS Safety Report 6608584-X (Version None)
Quarter: 2010Q1

REPORT INFORMATION
  Report Type: 
  Country: None (occurrence: None)
  Receive Date: 20100223
  Receipt Date: 20100211
  Transmission Date: 20100710
  Serious: Yes (Hospitalization, Other)
  Sender: FDA-Public Use
  Company Number: 236652K09USA

PATIENT
  Age: 30 Year
  Sex: Female
  Weight: 86 kg

DRUGS (5)
  1. REBIF [Suspect]
     Indication: MULTIPLE SCLEROSIS
     Dosage: 44 MCG, 3 IN 1 WEEKS, SUBCUTANEOUS
     Route: 058
     Dates: start: 20081212
  2. SOLU-MEDROL [Suspect]
     Indication: MULTIPLE SCLEROSIS
     Dosage: 1 G, 1 IN 1 MONTHS, INTRAVENOUS (NOT OTHERWISE SPECIFIED)
     Route: 042
     Dates: start: 20081212, end: 20090603
  3. LYRICA [Concomitant]
  4. MULTI-VITAMINS [Concomitant]
  5. PROBIOTIC (ALL OTHER THERAPEUTIC PRODUCTS) [Concomitant]

REACTIONS (13)
  - ANAPHYLACTIC REACTION [None]
  - BACTERIAL FOOD POISONING [None]
  - CAMPYLOBACTER INFECTION [None]
  - CENTRAL NERVOUS SYSTEM LESION [None]
  - COMPLEX PARTIAL SEIZURES [None]
  - DIZZINESS [None]
  - DYSARTHRIA [None]
  - DYSGRAPHIA [None]
  - ELECTROENCEPHALOGRAM ABNORMAL [None]
  - GASTROINTESTINAL DISORDER [None]
  - INFLUENZA LIKE ILLNESS [None]
  - SPEECH DISORDER [None]
  - STARING [None]
